FAERS Safety Report 7607747-4 (Version None)
Quarter: 2011Q3

REPORT INFORMATION
  Report Type: 
  Country: None (occurrence: None)
  Receive Date: 20110713
  Receipt Date: 20110607
  Transmission Date: 20111222
  Serious: Yes (Other)
  Sender: FDA-Public Use
  Company Number: PHHO2010FR09114

PATIENT
  Sex: Male
  Weight: 72 kg

DRUGS (3)
  1. AUGMENTIN '125' [Concomitant]
  2. ZOLEDRONIC ACID [Suspect]
     Indication: PROSTATE CANCER
  3. SUTENT [Suspect]
     Indication: PROSTATE CANCER
     Dosage: 3.75 MG, UNK
     Dates: start: 20080610

REACTIONS (1)
  - OSTEONECROSIS OF JAW [None]
